FAERS Safety Report 18283750 (Version 2)
Quarter: 2021Q4

REPORT INFORMATION
  Report Type: Spontaneous
  Country: CA (occurrence: CA)
  Receive Date: 20200918
  Receipt Date: 20211229
  Transmission Date: 20220303
  Serious: Yes (Hospitalization, Other)
  Sender: FDA-Public Use
  Company Number: None

PATIENT
  Age: 66 Year
  Sex: Female

DRUGS (6)
  1. ATENOLOL [Suspect]
     Active Substance: ATENOLOL
     Indication: Hypertension
     Route: 048
  2. SANDOSTATIN [Suspect]
     Active Substance: OCTREOTIDE ACETATE
     Indication: Neuroendocrine tumour
     Dosage: 60.0MG UNKNOWN, BATCH NO: S0058S,S0026,S0069
     Route: 030
     Dates: start: 20151204
  3. HYDRALAZINE [Concomitant]
     Active Substance: HYDRALAZINE HYDROCHLORIDE
     Indication: Product used for unknown indication
     Route: 065
     Dates: start: 201701
  4. TELMISARTAN [Concomitant]
     Active Substance: TELMISARTAN
     Indication: Product used for unknown indication
     Route: 065
  5. HYDROCHLOROTHIAZIDE [Concomitant]
     Active Substance: HYDROCHLOROTHIAZIDE
     Indication: Product used for unknown indication
     Dosage: 25.0MG UNKNOWN
     Route: 065
     Dates: start: 201701
  6. ATIVAN [Concomitant]
     Active Substance: LORAZEPAM
     Indication: Product used for unknown indication
     Dosage: 1.0MG UNKNOWN
     Route: 065

REACTIONS (61)
  - Blood pressure diastolic decreased [Unknown]
  - Cardiac failure [Unknown]
  - Crying [Unknown]
  - Diarrhoea [Recovered/Resolved]
  - Dyspnoea [Unknown]
  - Erythema [Unknown]
  - Fatigue [Unknown]
  - Headache [Recovered/Resolved]
  - Insomnia [Unknown]
  - Abdominal pain [Unknown]
  - Aggression [Unknown]
  - Anaemia [Unknown]
  - Anxiety [Unknown]
  - Blood pressure diastolic increased [Unknown]
  - Blood pressure systolic increased [Unknown]
  - Body temperature decreased [Unknown]
  - Bronchitis [Unknown]
  - Cataract [Unknown]
  - Coccydynia [Unknown]
  - Contusion [Unknown]
  - Cough [Unknown]
  - Dysphonia [Unknown]
  - Ear infection [Unknown]
  - Fall [Unknown]
  - Fear [Unknown]
  - Flushing [Unknown]
  - Fractured coccyx [Unknown]
  - Gait disturbance [Unknown]
  - Haemorrhage [Unknown]
  - Heart rate increased [Unknown]
  - Hot flush [Unknown]
  - Hyperhidrosis [Unknown]
  - Hypertension [Unknown]
  - Increased upper airway secretion [Unknown]
  - Influenza [Unknown]
  - Injection site erythema [Unknown]
  - Injection site haemorrhage [Unknown]
  - Injection site pain [Unknown]
  - Injection site swelling [Unknown]
  - Injection site warmth [Unknown]
  - Intestinal polyp [Unknown]
  - Malignant neoplasm progression [Unknown]
  - Metastases to liver [Unknown]
  - Migraine [Unknown]
  - Muscle tightness [Unknown]
  - Musculoskeletal pain [Unknown]
  - Nasopharyngitis [Unknown]
  - Neoplasm progression [Unknown]
  - Nervousness [Unknown]
  - Oedema peripheral [Unknown]
  - Oropharyngeal pain [Unknown]
  - Pain [Recovering/Resolving]
  - Pain in extremity [Recovering/Resolving]
  - Palpitations [Unknown]
  - Panic disorder [Unknown]
  - Proteinuria [Unknown]
  - Spinal fracture [Unknown]
  - Inappropriate schedule of product administration [Unknown]
  - Needle issue [Unknown]
  - Product quality issue [Unknown]
  - Asthenia [Unknown]

NARRATIVE: CASE EVENT DATE: 20060615
